FAERS Safety Report 21514784 (Version 1)
Quarter: 2022Q4

REPORT INFORMATION
  Report Type: Other
  Country: US (occurrence: None)
  Receive Date: 20221027
  Receipt Date: 20221027
  Transmission Date: 20230112
  Serious: Yes (Death, Hospitalization)
  Sender: FDA-Public Use
  Company Number: US-Merck Healthcare KGaA-9359458

PATIENT
  Age: 33 Year
  Sex: Female

DRUGS (4)
  1. METFORMIN HYDROCHLORIDE [Suspect]
     Active Substance: METFORMIN HYDROCHLORIDE
     Indication: Type 2 diabetes mellitus
  2. SITAGLIPTIN [Suspect]
     Active Substance: SITAGLIPTIN
     Indication: Type 2 diabetes mellitus
  3. SERTRALINE [Suspect]
     Active Substance: SERTRALINE HYDROCHLORIDE
     Indication: Type 2 diabetes mellitus
  4. EMPAGLIFLOZIN [Suspect]
     Active Substance: EMPAGLIFLOZIN
     Indication: Type 2 diabetes mellitus

REACTIONS (9)
  - Eosinophilic myocarditis [Fatal]
  - Hypotension [Unknown]
  - Ventricular tachycardia [Not Recovered/Not Resolved]
  - Embolic stroke [Unknown]
  - Respiratory arrest [Unknown]
  - Pulmonary embolism [Unknown]
  - Cardiac arrest [Unknown]
  - Metabolic acidosis [Unknown]
  - Intentional overdose [Unknown]
